FAERS Safety Report 17480546 (Version 14)
Quarter: 2021Q1

REPORT INFORMATION
  Report Type: Report from Study
  Country: US (occurrence: US)
  Receive Date: 20200301
  Receipt Date: 20210326
  Transmission Date: 20210419
  Serious: Yes (Other)
  Sender: FDA-Public Use
  Company Number: US-SHIRE-US202007886

PATIENT
  Sex: Female
  Weight: 49 kg

DRUGS (34)
  1. HUMAN NORMAL IMMUNOGLOBULIN; LIQUID [Suspect]
     Active Substance: HUMAN IMMUNOGLOBULIN G
     Dosage: 8 GRAM, 1X/WEEK
     Route: 065
  2. HUMAN NORMAL IMMUNOGLOBULIN; LIQUID [Suspect]
     Active Substance: HUMAN IMMUNOGLOBULIN G
     Dosage: 6 GRAM, 1X/WEEK
     Route: 065
     Dates: start: 202003
  3. MAGNESIUM [Concomitant]
     Active Substance: MAGNESIUM
  4. ZANTAC [Concomitant]
     Active Substance: RANITIDINE HYDROCHLORIDE
  5. OCUVITE ADULT 50+ [ASCORBIC ACID;COPPER GLUCONATE;FISH OIL;TOCOPHEROL; [Concomitant]
  6. ACETAMINOPHEN. [Concomitant]
     Active Substance: ACETAMINOPHEN
  7. OMEPRAZOLE. [Concomitant]
     Active Substance: OMEPRAZOLE
  8. HUMAN NORMAL IMMUNOGLOBULIN; LIQUID [Suspect]
     Active Substance: HUMAN IMMUNOGLOBULIN G
     Dosage: 2 GRAM
     Route: 065
     Dates: start: 20181109
  9. LMX4 [Concomitant]
     Active Substance: LIDOCAINE
  10. LAMICTAL [Concomitant]
     Active Substance: LAMOTRIGINE
  11. MAGNESIUM OXIDE. [Concomitant]
     Active Substance: MAGNESIUM OXIDE
  12. OXYBUTYNIN. [Concomitant]
     Active Substance: OXYBUTYNIN CHLORIDE
  13. FAMOTIDINE. [Concomitant]
     Active Substance: FAMOTIDINE
  14. HUMAN NORMAL IMMUNOGLOBULIN; LIQUID [Suspect]
     Active Substance: HUMAN IMMUNOGLOBULIN G
     Dosage: 4 GRAM
     Route: 065
  15. KLONOPIN [Concomitant]
     Active Substance: CLONAZEPAM
  16. HUMAN NORMAL IMMUNOGLOBULIN; LIQUID [Suspect]
     Active Substance: HUMAN IMMUNOGLOBULIN G
     Indication: IMMUNODEFICIENCY COMMON VARIABLE
     Dosage: 6 GRAM, 1X/WEEK
     Route: 058
     Dates: start: 20190124
  17. DIPHENHYDRAMINE. [Concomitant]
     Active Substance: DIPHENHYDRAMINE
  18. PRESERVISION [Concomitant]
     Active Substance: MINERALS\VITAMINS
  19. PROBIOTIC 10 [Concomitant]
     Active Substance: DIETARY SUPPLEMENT\PROBIOTICS
  20. OXYBUTYNIN CHLORIDE. [Concomitant]
     Active Substance: OXYBUTYNIN CHLORIDE
  21. HUMAN NORMAL IMMUNOGLOBULIN; LIQUID [Suspect]
     Active Substance: HUMAN IMMUNOGLOBULIN G
     Dosage: 6 GRAM, 1X/WEEK
     Route: 058
     Dates: start: 20181109
  22. EPINEPHRINE. [Concomitant]
     Active Substance: EPINEPHRINE
  23. HYDROXYZINE [Concomitant]
     Active Substance: HYDROXYZINE HYDROCHLORIDE
  24. OMEGA?3 [SALMO SALAR OIL] [Concomitant]
     Active Substance: ATLANTIC SALMON OIL
  25. HUMAN NORMAL IMMUNOGLOBULIN; LIQUID [Suspect]
     Active Substance: HUMAN IMMUNOGLOBULIN G
     Dosage: 6 GRAM, 1X/WEEK
     Route: 058
     Dates: start: 20190130
  26. ZOFRAN [Concomitant]
     Active Substance: ONDANSETRON HYDROCHLORIDE
  27. MOBIC [Concomitant]
     Active Substance: MELOXICAM
  28. LUTEIN?ZEAXANTHIN [Concomitant]
  29. CALCIUM [Concomitant]
     Active Substance: CALCIUM
  30. HYDROCODONE/ACETAMINOPHEN [Concomitant]
     Active Substance: ACETAMINOPHEN\HYDROCODONE
  31. NORCO [Concomitant]
     Active Substance: ACETAMINOPHEN\HYDROCODONE BITARTRATE
  32. HIZENTRA [Concomitant]
     Active Substance: HUMAN IMMUNOGLOBULIN G
  33. FLUVOXAMINE [Concomitant]
     Active Substance: FLUVOXAMINE
  34. MULTIVITAMINS [VITAMINS NOS] [Concomitant]
     Active Substance: VITAMINS

REACTIONS (27)
  - Cystitis [Unknown]
  - Paronychia [Unknown]
  - Skin atrophy [Unknown]
  - Sepsis [Unknown]
  - Swelling [Not Recovered/Not Resolved]
  - Product dose omission issue [Unknown]
  - Transient ischaemic attack [Unknown]
  - Hypertonic bladder [Unknown]
  - White blood cell count decreased [Unknown]
  - Headache [Unknown]
  - Infusion site bruising [Unknown]
  - Illness [Unknown]
  - Aphthous ulcer [Unknown]
  - Skin wrinkling [Unknown]
  - Oral fungal infection [Unknown]
  - Neck pain [Unknown]
  - Localised infection [Unknown]
  - Feeling abnormal [Unknown]
  - Pain [Unknown]
  - Oral herpes [Unknown]
  - Gastroenteritis viral [Recovered/Resolved]
  - Impaired healing [Unknown]
  - Infusion site swelling [Unknown]
  - Infusion site pain [Unknown]
  - Infusion site erythema [Unknown]
  - Infusion site pruritus [Unknown]
  - Nail infection [Unknown]
